FAERS Safety Report 21120602 (Version 12)
Quarter: 2024Q1

REPORT INFORMATION
  Report Type: Report from Study
  Country: CN (occurrence: CN)
  Receive Date: 20220722
  Receipt Date: 20240312
  Transmission Date: 20240410
  Serious: Yes (Life-Threatening, Hospitalization, Other)
  Sender: FDA-Public Use
  Company Number: CN-TAKEDA-2022TUS026469

PATIENT
  Age: 26 Year
  Sex: Male
  Weight: 70 kg

DRUGS (34)
  1. BRENTUXIMAB VEDOTIN [Suspect]
     Active Substance: BRENTUXIMAB VEDOTIN
     Indication: Anaplastic large-cell lymphoma
     Dosage: 123 MILLIGRAM, Q3WEEKS
     Route: 041
     Dates: start: 20220411
  2. BRENTUXIMAB VEDOTIN [Suspect]
     Active Substance: BRENTUXIMAB VEDOTIN
     Dosage: 127 MILLIGRAM, Q3WEEKS
     Route: 041
     Dates: start: 20220526
  3. BRENTUXIMAB VEDOTIN [Suspect]
     Active Substance: BRENTUXIMAB VEDOTIN
     Dosage: 125 MILLIGRAM, Q3WEEKS
     Route: 041
     Dates: start: 20220629, end: 20220826
  4. BRENTUXIMAB VEDOTIN [Suspect]
     Active Substance: BRENTUXIMAB VEDOTIN
     Dosage: 123 MILLIGRAM, Q3WEEKS
     Route: 041
     Dates: start: 20220726
  5. BRENTUXIMAB VEDOTIN [Suspect]
     Active Substance: BRENTUXIMAB VEDOTIN
     Dosage: 125 MILLIGRAM, Q3WEEKS
     Route: 041
     Dates: start: 20220826
  6. PROMETHAZINE HYDROCHLORIDE [Concomitant]
     Active Substance: PROMETHAZINE HYDROCHLORIDE
     Indication: Antiemetic supportive care
     Dosage: 25 MILLIGRAM
     Route: 030
     Dates: start: 20220411, end: 20220411
  7. SOLU-MEDROL [Concomitant]
     Active Substance: METHYLPREDNISOLONE SODIUM SUCCINATE
     Indication: Adjuvant therapy
     Dosage: 40 MILLIGRAM
     Route: 042
     Dates: start: 20220411, end: 20220411
  8. KANG AI [Concomitant]
     Indication: Prophylaxis
     Dosage: 60 MILLILITER, QD
     Route: 042
     Dates: start: 20220402, end: 20220417
  9. SODIUM BICARBONATE [Concomitant]
     Active Substance: SODIUM BICARBONATE
     Indication: Supplementation therapy
     Dosage: 125 MILLILITER, QD
     Route: 042
     Dates: start: 20220402, end: 20220417
  10. METHIONINE AND VITAMIN B1 [Concomitant]
     Indication: Hepatitis viral
     Dosage: 40 MILLIGRAM, QD
     Route: 042
     Dates: start: 20220402, end: 20220413
  11. METHIONINE AND VITAMIN B1 [Concomitant]
     Indication: Liver disorder
  12. CEFOPERAZONE SODIUM\SULBACTAM SODIUM [Concomitant]
     Active Substance: CEFOPERAZONE SODIUM\SULBACTAM SODIUM
     Indication: Urinary tract infection
     Dosage: 3 GRAM, Q8HR
     Route: 042
     Dates: start: 20220402, end: 20220417
  13. CHUANG CHENG [Concomitant]
     Indication: Pneumonia
     Dosage: 250 MILLIGRAM, QD
     Route: 042
     Dates: start: 20220406, end: 20220417
  14. DEXAMETHASONE SODIUM PHOSPHATE [Concomitant]
     Active Substance: DEXAMETHASONE PHOSPHATE\DEXAMETHASONE SODIUM PHOSPHATE
     Indication: Lymphoma
     Dosage: 5 MILLIGRAM
     Route: 042
     Dates: start: 20220408, end: 20220408
  15. DEXAMETHASONE SODIUM PHOSPHATE [Concomitant]
     Active Substance: DEXAMETHASONE PHOSPHATE\DEXAMETHASONE SODIUM PHOSPHATE
     Indication: Allergy prophylaxis
     Dosage: 15 MILLIGRAM, QD
     Route: 042
     Dates: start: 20220409, end: 20220411
  16. DEXAMETHASONE SODIUM PHOSPHATE [Concomitant]
     Active Substance: DEXAMETHASONE PHOSPHATE\DEXAMETHASONE SODIUM PHOSPHATE
     Indication: Hypersensitivity
     Dosage: 45 MILLIGRAM
     Route: 042
  17. GLUTATHIONE [Concomitant]
     Active Substance: GLUTATHIONE
     Indication: Hepatitis viral
     Dosage: 2.4 GRAM, QD
     Route: 042
     Dates: start: 20220409, end: 20220417
  18. GLUTATHIONE [Concomitant]
     Active Substance: GLUTATHIONE
     Indication: Hepatic function abnormal
  19. GLUTATHIONE [Concomitant]
     Active Substance: GLUTATHIONE
     Indication: Hepatic steatosis
  20. NOCARDIA RUBRA CELL WALL SKELETON [Concomitant]
     Indication: Adjuvant therapy
     Dosage: 200 MICROGRAM
     Route: 042
     Dates: start: 20220411, end: 20220411
  21. ENTECAVIR [Concomitant]
     Active Substance: ENTECAVIR
     Indication: Hepatitis viral
     Dosage: 0.5 MILLIGRAM, QD
     Route: 048
     Dates: start: 20220406, end: 20220418
  22. ENTECAVIR [Concomitant]
     Active Substance: ENTECAVIR
     Indication: Hepatic function abnormal
  23. ENTECAVIR [Concomitant]
     Active Substance: ENTECAVIR
     Indication: Hepatic steatosis
  24. CYCLOPHOSPHAMIDE [Concomitant]
     Active Substance: CYCLOPHOSPHAMIDE
     Indication: Lymphoma
     Dosage: 1.35 GRAM
     Route: 042
     Dates: start: 20220412, end: 20220412
  25. DOXORUBICIN HYDROCHLORIDE [Concomitant]
     Active Substance: DOXORUBICIN HYDROCHLORIDE
     Indication: Lymphoma
     Dosage: 90 MILLIGRAM
     Route: 042
     Dates: start: 20220412, end: 20220412
  26. DEXRAZOXANE [Concomitant]
     Active Substance: DEXRAZOXANE
     Indication: Cardiotoxicity
     Dosage: 500 MILLIGRAM
     Route: 042
     Dates: start: 20220412, end: 20220412
  27. FOSAPREPITANT DIMEGLUMINE [Concomitant]
     Active Substance: FOSAPREPITANT DIMEGLUMINE
     Indication: Antiemetic supportive care
     Dosage: 150 MILLIGRAM
     Route: 042
     Dates: start: 20220412, end: 20220412
  28. AMIFOSTINE [Concomitant]
     Active Substance: AMIFOSTINE
     Indication: Colony stimulating factor therapy
     Dosage: 0.8 GRAM
     Route: 042
     Dates: start: 20220412, end: 20220412
  29. AMIFOSTINE [Concomitant]
     Active Substance: AMIFOSTINE
     Indication: Colony stimulating factor therapy
  30. MESNA [Concomitant]
     Active Substance: MESNA
     Indication: Detoxification
     Dosage: 0.4 GRAM, TID
     Route: 042
     Dates: start: 20220412, end: 20220412
  31. TORSEMIDE [Concomitant]
     Active Substance: TORSEMIDE
     Indication: Polyuria
     Dosage: 20 MILLIGRAM
     Route: 042
     Dates: start: 20220412, end: 20220412
  32. CALCIUM GLUCONATE [Concomitant]
     Active Substance: CALCIUM GLUCONATE
     Indication: Electrolyte substitution therapy
     Dosage: 20 MILLILITER
     Route: 042
     Dates: start: 20220412, end: 20220412
  33. PREDNISONE ACETATE [Concomitant]
     Active Substance: PREDNISONE ACETATE
     Indication: Lymphoma
     Dosage: 100 MILLIGRAM, QD
     Route: 048
     Dates: start: 20220412, end: 20220416
  34. DOLASETRON MESYLATE [Concomitant]
     Active Substance: DOLASETRON MESYLATE
     Indication: Antiemetic supportive care
     Dosage: 100 MILLIGRAM, QD
     Route: 042
     Dates: start: 20220412, end: 20220413

REACTIONS (9)
  - Myelosuppression [Not Recovered/Not Resolved]
  - Drug-induced liver injury [Not Recovered/Not Resolved]
  - Neurotoxicity [Recovered/Resolved]
  - Hypokalaemia [Recovered/Resolved]
  - Hypoalbuminaemia [Not Recovered/Not Resolved]
  - Neutrophil count decreased [Recovered/Resolved]
  - Blood glucose increased [Recovered/Resolved]
  - Hypocalcaemia [Recovered/Resolved]
  - Off label use [Unknown]

NARRATIVE: CASE EVENT DATE: 20220411
